FAERS Safety Report 12333305 (Version 1)
Quarter: 2016Q2

REPORT INFORMATION
  Report Type: Spontaneous
  Country: US (occurrence: US)
  Receive Date: 20160504
  Receipt Date: 20160504
  Transmission Date: 20160815
  Serious: No
  Sender: FDA-Public Use
  Company Number: US-ROCHE-1686026

PATIENT
  Sex: Female

DRUGS (4)
  1. METOPROLOL. [Concomitant]
     Active Substance: METOPROLOL
  2. ESBRIET [Suspect]
     Active Substance: PIRFENIDONE
     Indication: PRODUCT USED FOR UNKNOWN INDICATION
     Route: 048
     Dates: start: 20151105
  3. LISINOPRIL. [Concomitant]
     Active Substance: LISINOPRIL
  4. METFORMIN [Concomitant]
     Active Substance: METFORMIN HYDROCHLORIDE

REACTIONS (13)
  - Rhinorrhoea [Unknown]
  - Dyspepsia [Unknown]
  - Chest discomfort [Unknown]
  - Wheezing [Unknown]
  - Dry skin [Unknown]
  - Dyspnoea [Unknown]
  - Polyuria [Unknown]
  - Flatulence [Unknown]
  - Feeling hot [Unknown]
  - Cough [Unknown]
  - Rash [Unknown]
  - Hair texture abnormal [Unknown]
  - Insomnia [Unknown]
